FAERS Safety Report 7927279-3 (Version None)
Quarter: 2011Q4

REPORT INFORMATION
  Report Type: 
  Country: None (occurrence: None)
  Receive Date: 20111118
  Receipt Date: 20111108
  Transmission Date: 20120403
  Serious: Yes (Hospitalization)
  Sender: FDA-Public Use
  Company Number: ES-MEDIMMUNE-MEDI-0013833

PATIENT
  Sex: Male

DRUGS (1)
  1. SYNAGIS [Suspect]
     Indication: PROPHYLAXIS
     Route: 030
     Dates: start: 20111014, end: 20111014

REACTIONS (5)
  - SLOW RESPONSE TO STIMULI [None]
  - GAZE PALSY [None]
  - DIARRHOEA [None]
  - VOMITING [None]
  - HYPOTONIA [None]
